FAERS Safety Report 20070085 (Version 1)
Quarter: 2021Q4

REPORT INFORMATION
  Report Type: Spontaneous
  Country: FR (occurrence: FR)
  Receive Date: 20211115
  Receipt Date: 20211115
  Transmission Date: 20220303
  Serious: Yes (Hospitalization, Disabling, Congenital Anomaly, Other)
  Sender: FDA-Public Use
  Company Number: FR-ABBVIE-21K-056-4160695-00

PATIENT
  Sex: Male
  Weight: 2.62 kg

DRUGS (3)
  1. VALPROATE SODIUM [Suspect]
     Active Substance: VALPROATE SODIUM
     Indication: Maternal exposure timing unspecified
     Route: 064
  2. CLONAZEPAM [Suspect]
     Active Substance: CLONAZEPAM
     Indication: Maternal exposure timing unspecified
     Route: 064
  3. PHENOBARBITAL [Suspect]
     Active Substance: PHENOBARBITAL
     Indication: Maternal exposure timing unspecified
     Route: 064

REACTIONS (38)
  - Developmental delay [Unknown]
  - Psychomotor retardation [Unknown]
  - Intellectual disability [Unknown]
  - Language disorder [Unknown]
  - Speech disorder [Unknown]
  - Diplegia [Unknown]
  - Congenital central nervous system anomaly [Unknown]
  - Congenital kyphoscoliosis [Unknown]
  - Social (pragmatic) communication disorder [Unknown]
  - Dysmorphism [Unknown]
  - Congenital nose malformation [Unknown]
  - Congenital eyelid malformation [Unknown]
  - Congenital hand malformation [Unknown]
  - Foot deformity [Unknown]
  - Talipes [Unknown]
  - Disorientation [Unknown]
  - Intellectual disability [Unknown]
  - Balance disorder [Unknown]
  - Extensor plantar response [Unknown]
  - Dysphemia [Unknown]
  - Movement disorder [Unknown]
  - Amino acid level increased [Unknown]
  - Oedema peripheral [Unknown]
  - Haemangioma [Unknown]
  - Inguinal hernia [Unknown]
  - Hypotonia [Unknown]
  - Anxiety disorder [Unknown]
  - Strabismus [Unknown]
  - Weight increased [Unknown]
  - Somnolence [Unknown]
  - Aggression [Unknown]
  - Hypertonia [Unknown]
  - Epilepsy [Unknown]
  - Disturbance in attention [Unknown]
  - Autism spectrum disorder [Unknown]
  - Tremor [Unknown]
  - Limb malformation [Unknown]
  - Foetal exposure during pregnancy [Unknown]

NARRATIVE: CASE EVENT DATE: 19810903
